FAERS Safety Report 10248963 (Version 1)
Quarter: 2014Q2

REPORT INFORMATION
  Report Type: Spontaneous
  Country: GB (occurrence: None)
  Receive Date: 20140618
  Receipt Date: 20140618
  Transmission Date: 20141212
  Serious: Yes (Life-Threatening, Hospitalization, Other)
  Sender: FDA-Public Use
  Company Number: AUR-APL-2014-06394

PATIENT
  Age: 46 Year
  Sex: Female
  Weight: 52.1 kg

DRUGS (2)
  1. GABAPENTIN [Suspect]
     Indication: BACK PAIN
     Route: 048
     Dates: start: 201404, end: 20140517
  2. AMITRIPTYLINE (AMITRIPTYLINE) [Concomitant]

REACTIONS (3)
  - Suicide attempt [None]
  - Personality change [None]
  - Feeling abnormal [None]
